FAERS Safety Report 12589335 (Version 8)
Quarter: 2022Q3

REPORT INFORMATION
  Report Type: Report from Study
  Country: JP (occurrence: JP)
  Receive Date: 20160725
  Receipt Date: 20220913
  Transmission Date: 20221027
  Serious: Yes (Other)
  Sender: FDA-Public Use
  Company Number: JP-BRISTOL-MYERS SQUIBB COMPANY-BMS-2016-042866

PATIENT
  Age: 79 Year
  Sex: Male

DRUGS (12)
  1. NIVOLUMAB [Suspect]
     Active Substance: NIVOLUMAB
     Indication: Malignant melanoma
     Dosage: 2 MG/KG, Q3WK
     Route: 041
     Dates: start: 20151006, end: 20151006
  2. NIVOLUMAB [Suspect]
     Active Substance: NIVOLUMAB
     Dosage: 2 MG/KG, Q3WK
     Route: 041
     Dates: start: 20151027, end: 20151027
  3. NIVOLUMAB [Suspect]
     Active Substance: NIVOLUMAB
     Dosage: 2 MG/KG, Q3WK
     Route: 041
     Dates: start: 20151117, end: 20151117
  4. NIVOLUMAB [Suspect]
     Active Substance: NIVOLUMAB
     Dosage: 2 MG/KG, Q3WK
     Route: 041
     Dates: start: 20151208, end: 20151208
  5. NIVOLUMAB [Suspect]
     Active Substance: NIVOLUMAB
     Dosage: 2.1 MG/KG, Q3WK
     Route: 041
     Dates: start: 20160628, end: 20160628
  6. NIVOLUMAB [Suspect]
     Active Substance: NIVOLUMAB
     Dosage: 2.1 MG/KG, Q3WK
     Route: 041
     Dates: start: 20160720, end: 20160720
  7. NIVOLUMAB [Suspect]
     Active Substance: NIVOLUMAB
     Dosage: 2.1 MG/KG, Q3WK
     Route: 041
     Dates: start: 20160819, end: 20160819
  8. NIVOLUMAB [Suspect]
     Active Substance: NIVOLUMAB
     Dosage: 2.1 MG/KG, Q3WK
     Route: 041
     Dates: start: 20160916, end: 20160916
  9. NIVOLUMAB [Suspect]
     Active Substance: NIVOLUMAB
     Dosage: 2.1 MG/KG, Q3WK
     Route: 041
     Dates: start: 20161007, end: 20161007
  10. YERVOY [Suspect]
     Active Substance: IPILIMUMAB
     Indication: Malignant melanoma
     Dosage: 3 MG/KG, UNK
     Route: 041
     Dates: start: 20160105, end: 20160105
  11. YERVOY [Suspect]
     Active Substance: IPILIMUMAB
     Dosage: 3 MG/KG, UNK
     Route: 041
     Dates: start: 20160126, end: 20160126
  12. YERVOY [Suspect]
     Active Substance: IPILIMUMAB
     Dosage: 3 MG/KG, UNK
     Route: 041
     Dates: start: 20160216, end: 20160216

REACTIONS (2)
  - Hepatitis [Recovered/Resolved]
  - Leukoderma [Not Recovered/Not Resolved]

NARRATIVE: CASE EVENT DATE: 20160308
